FAERS Safety Report 4569046-7 (Version None)
Quarter: 2005Q1

REPORT INFORMATION
  Report Type: 
  Country: None (occurrence: None)
  Receive Date: 20050203
  Receipt Date: 20050121
  Transmission Date: 20050727
  Serious: Yes (Hospitalization)
  Sender: FDA-Public Use
  Company Number: 200510168EU

PATIENT
  Age: 65 Year
  Sex: Male
  Weight: 62 kg

DRUGS (8)
  1. DOCETAXEL [Suspect]
     Indication: NON-SMALL CELL LUNG CANCER
     Route: 042
     Dates: start: 20050110, end: 20050110
  2. CISPLATIN [Suspect]
     Indication: NON-SMALL CELL LUNG CANCER
     Route: 042
     Dates: start: 20050110, end: 20050111
  3. ZOCOR [Concomitant]
     Indication: HYPERCHOLESTEROLAEMIA
     Route: 048
     Dates: start: 20041001
  4. ACETAMINOPHEN [Concomitant]
     Indication: PAIN
     Route: 048
     Dates: start: 20050101
  5. TEMESTA [Concomitant]
     Indication: SEDATION
     Route: 048
     Dates: start: 20050101
  6. PALLADONE [Concomitant]
     Indication: PAIN
     Route: 048
     Dates: start: 20050117
  7. MS DIRECT [Concomitant]
     Indication: PAIN
     Route: 048
     Dates: start: 20050117
  8. IMODIUM [Concomitant]
     Indication: DIARRHOEA
     Route: 048
     Dates: start: 20050117

REACTIONS (5)
  - ANOREXIA [None]
  - DEEP VEIN THROMBOSIS [None]
  - DYSPHAGIA [None]
  - LOCALISED OEDEMA [None]
  - OEDEMA PERIPHERAL [None]
